FAERS Safety Report 20540719 (Version 1)
Quarter: 2022Q1

REPORT INFORMATION
  Report Type: Spontaneous
  Country: US (occurrence: None)
  Receive Date: 20220302
  Receipt Date: 20220302
  Transmission Date: 20220423
  Serious: Yes (Other)
  Sender: FDA-Public Use
  Company Number: None

PATIENT
  Age: 68 Year
  Sex: Male
  Weight: 88.0 kg

DRUGS (4)
  1. ATORVASTATIN CALCIUM [Suspect]
     Active Substance: ATORVASTATIN CALCIUM
     Indication: Blood cholesterol increased
     Dosage: OTHER QUANTITY : 1 TABLET;?FREQUENCY : DAILY;?
     Route: 048
     Dates: start: 20210108, end: 20210323
  2. ROSUVASTATIN [Suspect]
     Active Substance: ROSUVASTATIN
  3. AMLODIPINE\VALSARTAN [Concomitant]
     Active Substance: AMLODIPINE\VALSARTAN
  4. ASPIRIN [Concomitant]
     Active Substance: ASPIRIN

REACTIONS (8)
  - Pain [None]
  - Discomfort [None]
  - Amnesia [None]
  - Pelvic pain [None]
  - Back pain [None]
  - Arthralgia [None]
  - Exercise tolerance decreased [None]
  - Nerve injury [None]

NARRATIVE: CASE EVENT DATE: 20210222
